FAERS Safety Report 6725660-1 (Version None)
Quarter: 2010Q2

REPORT INFORMATION
  Report Type: 
  Country: None (occurrence: None)
  Receive Date: 20100514
  Receipt Date: 20100504
  Transmission Date: 20101027
  Serious: Yes (Hospitalization, Other)
  Sender: FDA-Public Use
  Company Number: US-ROCHE-702277

PATIENT
  Age: 61 Year
  Sex: Female

DRUGS (7)
  1. BEVACIZUMAB [Suspect]
     Dosage: DOSAGE REPORTED AS 1743
     Route: 042
     Dates: start: 20100203, end: 20100203
  2. BEVACIZUMAB [Suspect]
     Dosage: DOSEGE REPORTED AS: 1743
     Route: 042
     Dates: start: 20100303, end: 20100303
  3. TOPOTECAN [Suspect]
     Dosage: DOSAGE: 4.5 MG X 3 DAYS
     Route: 042
     Dates: start: 20100203, end: 20100205
  4. TOPOTECAN [Suspect]
     Dosage: DOSAGE: 4.5 MG X 3 DAYS
     Route: 042
     Dates: start: 20100303, end: 20100305
  5. CISPLATIN [Suspect]
     Dosage: DOSAGE: 100 MG
     Route: 042
     Dates: start: 20100203, end: 20100203
  6. CISPLATIN [Suspect]
     Route: 042
     Dates: start: 20100303, end: 20100303
  7. PEGFILGRASTIM [Concomitant]

REACTIONS (3)
  - ANAEMIA [None]
  - BLADDER PAIN [None]
  - URINARY TRACT INFECTION [None]
